FAERS Safety Report 8172917 (Version 5)
Quarter: 2018Q3

REPORT INFORMATION
  Report Type: Report from Study
  Country: JP (occurrence: JP)
  Receive Date: 20111007
  Receipt Date: 20180925
  Transmission Date: 20181010
  Serious: Yes (Death, Hospitalization, Other)
  Sender: FDA-Public Use
  Company Number: PHHY2011JP86414

PATIENT
  Age: 75 Year
  Sex: Male

DRUGS (19)
  1. TASIGNA [Suspect]
     Active Substance: NILOTINIB
     Dosage: 400 MG, DAILY
     Route: 048
     Dates: start: 20101119, end: 20110826
  2. ROHYPNOL [Concomitant]
     Active Substance: FLUNITRAZEPAM
     Indication: PRODUCT USED FOR UNKNOWN INDICATION
     Dosage: 1 MG,
     Route: 048
  3. DEPAS [Concomitant]
     Active Substance: ETIZOLAM
     Indication: PRODUCT USED FOR UNKNOWN INDICATION
     Dosage: 0.5 MG,
     Route: 048
     Dates: end: 20110902
  4. LIVACT [Concomitant]
     Active Substance: AMINO ACIDS
     Indication: PRODUCT USED FOR UNKNOWN INDICATION
     Dosage: 12.45 G,
     Route: 048
     Dates: start: 20100825, end: 20110902
  5. SAWATENE [Concomitant]
     Active Substance: CARBOCYSTEINE
     Indication: PRODUCT USED FOR UNKNOWN INDICATION
     Dosage: 750 MG,
     Route: 065
     Dates: end: 20110902
  6. MAGMITT [Concomitant]
     Active Substance: MAGNESIUM OXIDE
     Indication: PRODUCT USED FOR UNKNOWN INDICATION
     Dosage: 990 MG,
     Route: 048
     Dates: end: 20110902
  7. BUP?4 [Concomitant]
     Active Substance: PROPIVERINE
     Indication: PRODUCT USED FOR UNKNOWN INDICATION
     Dosage: 10 MG,
     Route: 048
  8. AMBROXOL HYDROCHLORIDE [Concomitant]
     Active Substance: AMBROXOL HYDROCHLORIDE
     Indication: PRODUCT USED FOR UNKNOWN INDICATION
     Dosage: 45 MG,
     Route: 048
     Dates: end: 20110902
  9. ASTOMIN [Concomitant]
     Active Substance: DIMEMORFAN
     Indication: PRODUCT USED FOR UNKNOWN INDICATION
     Dosage: 30 MG,
     Route: 048
     Dates: end: 20110902
  10. ZOPICLONE [Concomitant]
     Active Substance: ZOPICLONE
     Indication: PRODUCT USED FOR UNKNOWN INDICATION
     Dosage: 75 MG,
     Route: 048
  11. URSO [Concomitant]
     Active Substance: URSODIOL
     Indication: PRODUCT USED FOR UNKNOWN INDICATION
     Dosage: 600 MG, DAILY
     Route: 048
     Dates: start: 20100814, end: 20110902
  12. MUCOSOLVAN [Concomitant]
     Active Substance: AMBROXOL HYDROCHLORIDE
     Indication: PROPHYLAXIS
     Dosage: 45 MG, DAILY
     Route: 048
     Dates: start: 20110423, end: 20110902
  13. TASIGNA [Suspect]
     Active Substance: NILOTINIB
     Dosage: 400 MG AND 600 MG ALTERNATELY, DAILY
     Route: 048
     Dates: start: 20100924, end: 20101118
  14. FLIVAS [Concomitant]
     Active Substance: NAFTOPIDIL
     Indication: PRODUCT USED FOR UNKNOWN INDICATION
     Dosage: 50 MG,
     Route: 048
  15. TASIGNA [Suspect]
     Active Substance: NILOTINIB
     Indication: CHRONIC MYELOID LEUKAEMIA
     Dosage: 400 MG, DAILY
     Route: 048
     Dates: start: 20100205, end: 20100218
  16. TASIGNA [Suspect]
     Active Substance: NILOTINIB
     Dosage: 200 MG DAILY
     Route: 048
     Dates: start: 20100219, end: 20100408
  17. TASIGNA [Suspect]
     Active Substance: NILOTINIB
     Dosage: 400 MG DAILY
     Route: 048
     Dates: start: 20100409, end: 20100923
  18. MUCOSOLVAN [Concomitant]
     Active Substance: AMBROXOL HYDROCHLORIDE
     Dosage: 2 MG,
     Route: 048
     Dates: start: 20100423, end: 20110902
  19. NORVASC [Concomitant]
     Active Substance: AMLODIPINE BESYLATE
     Indication: PRODUCT USED FOR UNKNOWN INDICATION
     Dosage: 5 MG,
     Route: 048
     Dates: end: 20110902

REACTIONS (14)
  - Electrocardiogram QT prolonged [Not Recovered/Not Resolved]
  - Renal impairment [Unknown]
  - Acute respiratory failure [Fatal]
  - Pneumonia [Recovering/Resolving]
  - Pyrexia [Recovered/Resolved]
  - Malaise [Unknown]
  - Pollakiuria [Not Recovered/Not Resolved]
  - Rash [Recovering/Resolving]
  - Hypokalaemia [Not Recovered/Not Resolved]
  - Cough [Unknown]
  - Hypophagia [Not Recovered/Not Resolved]
  - Bronchitis [Recovering/Resolving]
  - Thrombocytopenia [Recovering/Resolving]
  - Pleural effusion [Unknown]

NARRATIVE: CASE EVENT DATE: 20100224
